FAERS Safety Report 19955119 (Version 1)
Quarter: 2021Q4

REPORT INFORMATION
  Report Type: Spontaneous
  Country: US (occurrence: US)
  Receive Date: 20211014
  Receipt Date: 20211014
  Transmission Date: 20220303
  Serious: No
  Sender: FDA-Public Use
  Company Number: US-PFIZER INC-2021354356

PATIENT
  Sex: Female

DRUGS (2)
  1. PREGABALIN [Suspect]
     Active Substance: PREGABALIN
     Indication: Herpes zoster
     Dosage: 150 MG
  2. PREGABALIN [Suspect]
     Active Substance: PREGABALIN
     Indication: Sleep disorder

REACTIONS (1)
  - Tinnitus [Unknown]
